FAERS Safety Report 5720481-0 (Version None)
Quarter: 2008Q2

REPORT INFORMATION
  Report Type: 
  Country: None (occurrence: None)
  Receive Date: 20080423
  Receipt Date: 20070425
  Transmission Date: 20081010
  Serious: Yes (Other)
  Sender: FDA-Public Use
  Company Number: 239514

PATIENT
  Age: 58 Year
  Sex: Female

DRUGS (1)
  1. AVASTIN [Suspect]
     Indication: COLON CANCER
     Dosage: 340 MG, Q14D, INTRAVENOUS
     Route: 042
     Dates: start: 20060530

REACTIONS (1)
  - CEREBRAL INFARCTION [None]
